FAERS Safety Report 7327962-7 (Version None)
Quarter: 2011Q1

REPORT INFORMATION
  Report Type: 
  Country: None (occurrence: None)
  Receive Date: 20110303
  Receipt Date: 20110223
  Transmission Date: 20110831
  Serious: Yes (Hospitalization)
  Sender: FDA-Public Use
  Company Number: KR-ELI_LILLY_AND_COMPANY-KR201102006900

PATIENT
  Age: 42 Year
  Sex: Female

DRUGS (2)
  1. HUMALOG MIX 50/50 [Suspect]
     Indication: TYPE 2 DIABETES MELLITUS
     Dosage: 55 U, EACH MORNING
     Dates: start: 20101201
  2. HUMALOG MIX 50/50 [Suspect]
     Dosage: 30 U, EACH EVENING
     Dates: start: 20101201

REACTIONS (2)
  - DRUG DOSE OMISSION [None]
  - HYPERGLYCAEMIA [None]
